FAERS Safety Report 13496699 (Version 2)
Quarter: 2017Q2

REPORT INFORMATION
  Report Type: Spontaneous
  Country: US (occurrence: US)
  Receive Date: 20170428
  Receipt Date: 20170428
  Transmission Date: 20170830
  Serious: No
  Sender: FDA-Public Use
  Company Number: US-JAZZ-2017-US-003736

PATIENT
  Sex: Female

DRUGS (45)
  1. LOVENOX [Concomitant]
     Active Substance: ENOXAPARIN SODIUM
  2. AFRIN [Concomitant]
     Active Substance: OXYMETAZOLINE
  3. ASPIRIN 81 [Concomitant]
     Active Substance: ASPIRIN
  4. PANTOTHENIC ACID [Concomitant]
     Active Substance: PANTOTHENIC ACID
  5. SPIRONOLACTONE. [Concomitant]
     Active Substance: SPIRONOLACTONE
  6. ZOMIG [Concomitant]
     Active Substance: ZOLMITRIPTAN
  7. B COMPLEX WITH FOLIC ACID [Concomitant]
  8. SERTRALINE HCL [Concomitant]
     Active Substance: SERTRALINE HYDROCHLORIDE
  9. ROSUVASTATIN CALCIUM. [Concomitant]
     Active Substance: ROSUVASTATIN CALCIUM
  10. KLOR-CON M10 [Concomitant]
     Active Substance: POTASSIUM CHLORIDE
  11. GLUCOSAMINE + CHONDROITIN          /01430901/ [Concomitant]
  12. ATORVASTATIN [Concomitant]
     Active Substance: ATORVASTATIN
  13. CEREFOLIN NAC                      /06235601/ [Concomitant]
  14. XYREM [Suspect]
     Active Substance: SODIUM OXYBATE
     Indication: NARCOLEPSY
     Dosage: 2.25G, BID
     Route: 048
     Dates: start: 201504
  15. NORCO [Concomitant]
     Active Substance: ACETAMINOPHEN\HYDROCODONE BITARTRATE
  16. COENZYME Q10 [Concomitant]
     Active Substance: UBIDECARENONE
  17. REFRESH LIQUIGEL [Concomitant]
     Active Substance: CARBOXYMETHYLCELLULOSE SODIUM
  18. VITAMIN D3 [Concomitant]
     Active Substance: CHOLECALCIFEROL
  19. TORSEMIDE. [Concomitant]
     Active Substance: TORSEMIDE
  20. TOPIRAMATE. [Concomitant]
     Active Substance: TOPIRAMATE
  21. FAMOTIDINE. [Concomitant]
     Active Substance: FAMOTIDINE
  22. AZELASTINE [Concomitant]
     Active Substance: AZELASTINE
  23. ALIGN [Concomitant]
     Active Substance: BIFIDOBACTERIUM LONGUM SUBSP. INFANTIS
  24. BUDESONIDE. [Concomitant]
     Active Substance: BUDESONIDE
  25. CHROMIUM PICOLINATE [Concomitant]
     Active Substance: CHROMIUM PICOLINATE
  26. CLARITIN [Concomitant]
     Active Substance: LORATADINE
  27. COUMADIN [Concomitant]
     Active Substance: WARFARIN SODIUM
  28. TYLENOL EXTRA STRENGTH [Concomitant]
     Active Substance: ACETAMINOPHEN
  29. VITAMIN B COMPLEX [Concomitant]
     Active Substance: CYANOCOBALAMIN\DEXPANTHENOL\NIACINAMIDE\PYRIDOXINE HYDROCHLORIDE\RIBOFLAVIN 5^-PHOSPHATE SODIUM\THIAMINE HYDROCHLORIDE\VITAMIN B COMPLEX
  30. VITAMIN C [Concomitant]
     Active Substance: ASCORBIC ACID
  31. ZETIA [Concomitant]
     Active Substance: EZETIMIBE
  32. NASOGEL [Concomitant]
  33. CITRACAL + D                       /01438101/ [Concomitant]
  34. NASONEX [Concomitant]
     Active Substance: MOMETASONE FUROATE
  35. PREMARIN [Concomitant]
     Active Substance: ESTROGENS, CONJUGATED
  36. TRAMADOL HCL [Concomitant]
     Active Substance: TRAMADOL HYDROCHLORIDE
  37. LYRICA [Concomitant]
     Active Substance: PREGABALIN
  38. NUVIGIL [Concomitant]
     Active Substance: ARMODAFINIL
  39. BIOTIN [Concomitant]
     Active Substance: BIOTIN
  40. NIACIN. [Concomitant]
     Active Substance: NIACIN
  41. TIROSINT [Concomitant]
     Active Substance: LEVOTHYROXINE SODIUM
  42. NEXIUM [Concomitant]
     Active Substance: ESOMEPRAZOLE MAGNESIUM
  43. TYLENOL WITH CODEINE [Concomitant]
     Active Substance: ACETAMINOPHEN\CODEINE PHOSPHATE
  44. MODAFINIL. [Concomitant]
     Active Substance: MODAFINIL
  45. VICODIN [Concomitant]
     Active Substance: ACETAMINOPHEN\HYDROCODONE BITARTRATE

REACTIONS (1)
  - Influenza [Recovered/Resolved]
